FAERS Safety Report 6373542-X (Version None)
Quarter: 2009Q3

REPORT INFORMATION
  Report Type: 
  Country: None (occurrence: None)
  Receive Date: 20090924
  Receipt Date: 20090223
  Transmission Date: 20100115
  Serious: No
  Sender: FDA-Public Use
  Company Number: US-ASTRAZENECA-2009UW05016

PATIENT
  Age: 19200 Day
  Sex: Female

DRUGS (1)
  1. SEROQUEL [Suspect]
     Route: 048
     Dates: start: 20081101

REACTIONS (3)
  - ANXIETY [None]
  - ILL-DEFINED DISORDER [None]
  - MOOD ALTERED [None]
